FAERS Safety Report 13898960 (Version 1)
Quarter: 2017Q3

REPORT INFORMATION
  Report Type: Spontaneous
  Country: US (occurrence: US)
  Receive Date: 20170824
  Receipt Date: 20170824
  Transmission Date: 20171127
  Serious: No
  Sender: FDA-Public Use
  Company Number: US-SUN PHARMACEUTICAL INDUSTRIES LTD-2017US-145257

PATIENT
  Sex: Female

DRUGS (1)
  1. BUPRENORPHINE. [Suspect]
     Active Substance: BUPRENORPHINE
     Indication: PRODUCT USED FOR UNKNOWN INDICATION
     Dosage: UNK
     Route: 060

REACTIONS (6)
  - Product solubility abnormal [Unknown]
  - Therapeutic response decreased [Unknown]
  - Product taste abnormal [Unknown]
  - Flatulence [Unknown]
  - Wrong technique in product usage process [Unknown]
  - Product substitution issue [Unknown]
